FAERS Safety Report 22622266 (Version 2)
Quarter: 2023Q4

REPORT INFORMATION
  Report Type: Other
  Country: DE (occurrence: DE)
  Receive Date: 20230620
  Receipt Date: 20231108
  Transmission Date: 20240109
  Serious: Yes (Other)
  Sender: FDA-Public Use
  Company Number: DE-ROCHE-3363994

PATIENT

DRUGS (13)
  1. TAFASITAMAB [Suspect]
     Active Substance: TAFASITAMAB
     Indication: Diffuse large B-cell lymphoma
     Dosage: FIFTH LINE WITH LENALIDOMIDE
     Route: 065
     Dates: start: 20230301, end: 20230501
  2. RITUXIMAB [Suspect]
     Active Substance: RITUXIMAB
     Indication: Diffuse large B-cell lymphoma
     Dosage: FIRST LINE WITH CHOP
     Route: 065
     Dates: start: 20220201, end: 20220601
  3. RITUXIMAB [Suspect]
     Active Substance: RITUXIMAB
     Dosage: SECOND LINE WITH GEMOX, FOUR CYCLES
     Route: 065
     Dates: start: 20220819, end: 20221001
  4. RITUXIMAB [Suspect]
     Active Substance: RITUXIMAB
     Dosage: THIRD LINE WITH POLATUZUMAB AND BENDAMSUTINE, ONE CYCLE
     Route: 065
     Dates: start: 20221117, end: 20221119
  5. LENALIDOMIDE [Suspect]
     Active Substance: LENALIDOMIDE
     Indication: Diffuse large B-cell lymphoma
     Dosage: FIFTH LINE WITH TAFASITAMAB
     Route: 065
     Dates: start: 20230301, end: 20230501
  6. CYCLOPHOSPHAMIDE [Suspect]
     Active Substance: CYCLOPHOSPHAMIDE
     Indication: Diffuse large B-cell lymphoma
     Dosage: FIRST LINE WITH RITUXIMAB
     Route: 065
     Dates: start: 20220201, end: 20220601
  7. DOXORUBICIN [Suspect]
     Active Substance: DOXORUBICIN
     Indication: Diffuse large B-cell lymphoma
     Dosage: FIRST LINE WITH RITUXIMAB
     Route: 065
     Dates: start: 20220201, end: 20220601
  8. VINCRISTINE [Suspect]
     Active Substance: VINCRISTINE
     Indication: Diffuse large B-cell lymphoma
     Dosage: FIRST LINE WITH RITUXIMAB
     Route: 065
     Dates: start: 20220201, end: 20220601
  9. GENETICALLY-MODIFIED AUTOLOGOUS T CELLS NOS [Suspect]
     Active Substance: GENETICALLY-MODIFIED AUTOLOGOUS T CELLS NOS
     Indication: Diffuse large B-cell lymphoma
     Dosage: FOURTH LINE
     Route: 065
     Dates: start: 20221219, end: 20221219
  10. POLATUZUMAB VEDOTIN [Suspect]
     Active Substance: POLATUZUMAB VEDOTIN
     Indication: Diffuse large B-cell lymphoma
     Dosage: THIRD LINE WITH RITUXIMAB AND BENDAMUSTINE, ONE CYCLE
     Route: 065
     Dates: start: 20221117, end: 20221119
  11. BENDAMUSTINE [Suspect]
     Active Substance: BENDAMUSTINE
     Indication: Diffuse large B-cell lymphoma
     Dosage: THIRD LINE WITH RITUXIMAB AND POLATUZUMAB, ONE CYCLES
     Route: 065
     Dates: start: 20221117, end: 20221119
  12. GEMFIBROZIL [Suspect]
     Active Substance: GEMFIBROZIL
     Indication: Diffuse large B-cell lymphoma
     Dosage: SECOND LINE WITH RITUXIMAB, FOUR CYCLES
     Route: 065
     Dates: start: 20220819, end: 20221001
  13. PREDNISONE [Suspect]
     Active Substance: PREDNISONE
     Indication: Diffuse large B-cell lymphoma
     Dosage: FIRST LINE WITH RITUXIMAB
     Route: 065
     Dates: start: 20220201, end: 20220601

REACTIONS (4)
  - Lymphoma [Not Recovered/Not Resolved]
  - Atrial fibrillation [Unknown]
  - Neutropenia [Unknown]
  - Pyrexia [Unknown]
